FAERS Safety Report 14427477 (Version 2)
Quarter: 2019Q1

REPORT INFORMATION
  Report Type: Spontaneous
  Country: US (occurrence: US)
  Receive Date: 20180123
  Receipt Date: 20190303
  Transmission Date: 20190417
  Serious: No
  Sender: FDA-Public Use
  Company Number: US-IMPAX LABORATORIES, INC-2017-IPXL-03723

PATIENT
  Age: 51 Year
  Sex: Male

DRUGS (7)
  1. RYTARY [Suspect]
     Active Substance: CARBIDOPA\LEVODOPA
     Dosage: 23.75/95 MG TWO CAPSULES PER DAY AND 61.25/245 MG THREE CAPSULES PER DAY
     Route: 048
  2. RYTARY [Suspect]
     Active Substance: CARBIDOPA\LEVODOPA
     Dosage: 61.25/245MG, 5 PER DAY, 48.75/195MG, 1 PER DAY
     Route: 048
  3. RYTARY [Suspect]
     Active Substance: CARBIDOPA\LEVODOPA
     Dosage: 61.25/245 MG, 5 PER DAY, 48.75/195MG, 1 PER DAY, 23.75/95MG, 2 CAPSULE PER DAY
     Route: 048
  4. RYTARY [Suspect]
     Active Substance: CARBIDOPA\LEVODOPA
     Dosage: 23.75/95 MG AND 48.75/195 MG, UNK
     Route: 048
  5. RYTARY [Suspect]
     Active Substance: CARBIDOPA\LEVODOPA
     Indication: PRODUCT USED FOR UNKNOWN INDICATION
     Dosage: 61.25/245 MG, THREE CAPSULES A DAY
     Route: 048
  6. RYTARY [Suspect]
     Active Substance: CARBIDOPA\LEVODOPA
     Dosage: 23.75/95MG, 1 CAP 3 TIMES PER DAY AND 36.25/145MG, 3 CAPSULES 3 TIMES PER DAY AND 1 CAPSULE AT 6 PM
     Route: 048
  7. RYTARY [Suspect]
     Active Substance: CARBIDOPA\LEVODOPA
     Dosage: 61.25/245 MG, 5 PER DAY, 48.75/195MG, 1 PER DAY, 23.75/95MG, 2 CAPSULE PER DAY
     Route: 048

REACTIONS (7)
  - Tremor [Unknown]
  - Dyskinesia [Unknown]
  - Anxiety [Unknown]
  - Therapeutic response shortened [Unknown]
  - Hypokinesia [Unknown]
  - Musculoskeletal stiffness [Unknown]
  - Hyperhidrosis [Unknown]
